FAERS Safety Report 12616479 (Version 1)
Quarter: 2016Q3

REPORT INFORMATION
  Report Type: Spontaneous
  Country: US (occurrence: US)
  Receive Date: 20160802
  Receipt Date: 20160802
  Transmission Date: 20161109
  Serious: Yes (Hospitalization, Other)
  Sender: FDA-Public Use
  Company Number: US-SAOL THERAPEUTICS-2016SAO00314

PATIENT
  Age: 68 Year
  Sex: Male

DRUGS (5)
  1. COMPOUNDED BACLOFEN [Suspect]
     Active Substance: BACLOFEN
     Indication: PAIN
     Route: 037
  2. MORPHINE [Suspect]
     Active Substance: MORPHINE
     Route: 037
  3. FENTANYL. [Suspect]
     Active Substance: FENTANYL
     Route: 037
  4. DILAUDID [Suspect]
     Active Substance: HYDROMORPHONE HYDROCHLORIDE
     Route: 037
  5. COMPOUNDED BACLOFEN [Suspect]
     Active Substance: BACLOFEN
     Indication: POST LAMINECTOMY SYNDROME

REACTIONS (11)
  - Unevaluable event [Unknown]
  - Pain [Unknown]
  - Drug withdrawal syndrome [Unknown]
  - Mobility decreased [Unknown]
  - Insomnia [Unknown]
  - Hypoacusis [Unknown]
  - Device issue [Unknown]
  - Off label use [Unknown]
  - Restless legs syndrome [Unknown]
  - Therapy non-responder [Unknown]
  - Somnolence [Unknown]

NARRATIVE: CASE EVENT DATE: 20160510
